FAERS Safety Report 7630192-2 (Version None)
Quarter: 2011Q3

REPORT INFORMATION
  Report Type: 
  Country: None (occurrence: None)
  Receive Date: 20110722
  Receipt Date: 20110711
  Transmission Date: 20111222
  Serious: Yes (Hospitalization, Other)
  Sender: FDA-Public Use
  Company Number: US-JNJFOC-20110706235

PATIENT
  Sex: Female

DRUGS (3)
  1. TOPAMAX [Suspect]
     Indication: MIGRAINE
     Dosage: FOR SEVERAL YEARS
     Route: 048
  2. TOPAMAX [Suspect]
     Route: 048
     Dates: start: 20110525
  3. NUCYNTA [Suspect]
     Indication: PAIN

REACTIONS (6)
  - HEADACHE [None]
  - DISORIENTATION [None]
  - INTRACRANIAL ANEURYSM [None]
  - CONVULSION [None]
  - MEMORY IMPAIRMENT [None]
  - CEREBROVASCULAR ACCIDENT [None]
